FAERS Safety Report 15793698 (Version 1)
Quarter: 2019Q1

REPORT INFORMATION
  Report Type: Spontaneous
  Country: FR (occurrence: FR)
  Receive Date: 20190107
  Receipt Date: 20190107
  Transmission Date: 20190417
  Serious: Yes (Other)
  Sender: FDA-Public Use
  Company Number: FR-PFIZER INC-2019004392

PATIENT
  Age: 70 Year
  Sex: Male
  Weight: 77 kg

DRUGS (8)
  1. IRINOTECAN [Concomitant]
     Active Substance: IRINOTECAN
  2. OXALIPLATIN. [Suspect]
     Active Substance: OXALIPLATIN
     Indication: ADENOCARCINOMA OF COLON
     Dosage: 160 MG, CYCLIC (EVERY 15 DAYS)
     Route: 042
     Dates: start: 20181112, end: 20181112
  3. ONDANSETRON [Concomitant]
     Active Substance: ONDANSETRON
  4. ATROPINE. [Concomitant]
     Active Substance: ATROPINE
  5. FLUOROURACIL. [Concomitant]
     Active Substance: FLUOROURACIL
  6. CALCIUM FOLINATE [Concomitant]
     Active Substance: LEUCOVORIN CALCIUM
  7. EMEND [Concomitant]
     Active Substance: APREPITANT
  8. METHYLPREDNISOLONE. [Concomitant]
     Active Substance: METHYLPREDNISOLONE

REACTIONS (2)
  - Laryngospasm [Recovered/Resolved]
  - Dyspnoea [Recovered/Resolved]

NARRATIVE: CASE EVENT DATE: 20181112
